FAERS Safety Report 10215704 (Version 1)
Quarter: 2014Q2

REPORT INFORMATION
  Report Type: Spontaneous
  Country: FR (occurrence: None)
  Receive Date: 20140519
  Receipt Date: 20140519
  Transmission Date: 20141212
  Serious: Yes (Other)
  Sender: FDA-Public Use
  Company Number: GAM-156-14-FR

PATIENT
  Age: 64 Year
  Sex: Female

DRUGS (8)
  1. OCTAGAM [Suspect]
     Indication: DERMATOMYOSITIS
     Dosage: 25 G (5X 1/MONTY)  ??(NOT OTHERWISE SPECIFIED)
     Route: 042
     Dates: start: 20140303, end: 20140307
  2. METHOTREXATE [Concomitant]
  3. FOLIC ACID [Concomitant]
  4. AMOXICILIN AND CLAVULANIC ACID [Concomitant]
  5. CALCIUM CARBONATE AND COLECALCIFEROL [Concomitant]
  6. PREDNISONE [Concomitant]
  7. PANTOPRAZOLE [Concomitant]
  8. SODIUM CARMELLOSE [Concomitant]

REACTIONS (2)
  - Pulmonary embolism [None]
  - Pneumonia [None]
